FAERS Safety Report 25873547 (Version 2)
Quarter: 2025Q4

REPORT INFORMATION
  Report Type: Spontaneous
  Country: EU (occurrence: EU)
  Receive Date: 20251002
  Receipt Date: 20251002
  Transmission Date: 20260117
  Serious: Yes (Hospitalization, Other)
  Sender: ELI LILLY AND COMPANY
  Company Number: EU-SA-SAC20240516000009

PATIENT
  Age: 77 Year
  Sex: Male
  Weight: 78 kg

DRUGS (10)
  1. INSULIN HUMAN [Suspect]
     Active Substance: INSULIN HUMAN
     Indication: Blood glucose increased
     Dosage: UNK, UNKNOWN
     Route: 065
  2. TOUJEO [Suspect]
     Active Substance: INSULIN GLARGINE
     Indication: Type 2 diabetes mellitus
     Dosage: 22 IU, QD
     Route: 058
     Dates: start: 202403
  3. TOUJEO [Suspect]
     Active Substance: INSULIN GLARGINE
     Dosage: 16 IU, QD
     Route: 058
     Dates: end: 20250720
  4. TOUJEO [Suspect]
     Active Substance: INSULIN GLARGINE
     Dosage: 20 IU, QD
     Route: 058
     Dates: start: 2025, end: 2025
  5. TOUJEO [Suspect]
     Active Substance: INSULIN GLARGINE
     Dosage: 16 IU, QD
     Route: 058
     Dates: start: 2025
  6. TOUJEO [Suspect]
     Active Substance: INSULIN GLARGINE
     Dosage: UNK UNK, UNKNOWN
     Route: 065
  7. SINTROM [Concomitant]
     Active Substance: ACENOCOUMAROL
     Indication: Arrhythmia
     Dosage: UNK UNK, DAILY
     Route: 048
     Dates: start: 2000
  8. INVOKANA [Concomitant]
     Active Substance: CANAGLIFLOZIN
     Indication: Product used for unknown indication
  9. METFORMIN HYDROCHLORIDE [Concomitant]
     Active Substance: METFORMIN HYDROCHLORIDE
     Indication: Type 2 diabetes mellitus
  10. HIBOR [Concomitant]
     Indication: Product used for unknown indication

REACTIONS (22)
  - Jaundice [Not Recovered/Not Resolved]
  - Pancreatic carcinoma [Recovering/Resolving]
  - Pancreatic cyst [Recovering/Resolving]
  - Pyrexia [Recovered/Resolved]
  - Hyperglycaemia [Recovered/Resolved]
  - Haematological infection [Unknown]
  - Feeling abnormal [Recovering/Resolving]
  - Memory impairment [Unknown]
  - Anticoagulation drug level below therapeutic [Unknown]
  - Diarrhoea [Recovering/Resolving]
  - Frequent bowel movements [Recovering/Resolving]
  - Discouragement [Recovering/Resolving]
  - Hyperglycaemia [Recovering/Resolving]
  - Multiple use of single-use product [Unknown]
  - Wrong technique in product usage process [Unknown]
  - Product storage error [Unknown]
  - Malaise [Recovered/Resolved]
  - Asthenia [Recovering/Resolving]
  - Hypoglycaemia [Recovered/Resolved]
  - Decreased appetite [Unknown]
  - Fatigue [Recovering/Resolving]
  - Vein collapse [Recovering/Resolving]

NARRATIVE: CASE EVENT DATE: 20240101
